FAERS Safety Report 4834577-9 (Version None)
Quarter: 2005Q4

REPORT INFORMATION
  Report Type: 
  Country: None (occurrence: None)
  Receive Date: 20051122
  Receipt Date: 20050413
  Transmission Date: 20060501
  Serious: No
  Sender: FDA-Public Use
  Company Number: US-BRISTOL-MYERS SQUIBB COMPANY-12930970

PATIENT
  Age: 75 Year
  Sex: Male
  Weight: 82 kg

DRUGS (8)
  1. PRAVACHOL [Suspect]
     Indication: CAROTID ARTERY STENOSIS
     Dates: start: 20040110
  2. SYNTHROID [Concomitant]
  3. TENORMIN [Concomitant]
  4. ASPIRIN [Concomitant]
  5. VITAMIN E [Concomitant]
  6. ASCORBIC ACID [Concomitant]
  7. MULTI-VITAMIN [Concomitant]
  8. METAMUCIL [Concomitant]

REACTIONS (1)
  - NEUROPATHY PERIPHERAL [None]
